FAERS Safety Report 23822720 (Version 2)
Quarter: 2024Q3

REPORT INFORMATION
  Report Type: Spontaneous
  Country: AU (occurrence: AU)
  Receive Date: 20240506
  Receipt Date: 20240703
  Transmission Date: 20241016
  Serious: Yes (Hospitalization)
  Sender: CARA THERAPEUTICS
  Company Number: AU-Vifor Pharma-VIT-2024-03960

PATIENT
  Age: 69 Year
  Sex: Male
  Weight: 59 kg

DRUGS (11)
  1. KORSUVA [Suspect]
     Active Substance: DIFELIKEFALIN ACETATE
     Indication: Uraemic pruritus
     Dosage: DOSAGE: 0.5MCG/KG; AT THE END OF EACH HAEMODIALYSIS SESSION; SUBSEQUENT DOSE ON 20-APR-2024; 1-2 ...
     Route: 050
     Dates: start: 20240418
  2. KORSUVA [Suspect]
     Active Substance: DIFELIKEFALIN ACETATE
     Indication: Pruritus
  3. CALCITRIOL [Concomitant]
     Active Substance: CALCITRIOL
     Indication: Hyperparathyroidism
     Dosage: 0.25 MCG
     Route: 050
     Dates: start: 2018
  4. SEVELAMER HYDROCHLORIDE [Concomitant]
     Active Substance: SEVELAMER HYDROCHLORIDE
     Indication: Hyperphosphataemia
     Dosage: TDS WITH MEALS (1600 MG, 3 IN 1 D)
     Route: 048
     Dates: start: 2019
  5. GABAPENTIN [Concomitant]
     Active Substance: GABAPENTIN
     Indication: Pruritus
     Dosage: 100MG MANE, 200MG NOCTE
     Route: 050
     Dates: start: 2019
  6. DIGOXIN [Concomitant]
     Active Substance: DIGOXIN
     Indication: Atrial fibrillation
     Dosage: 62.5 MCG
     Route: 050
     Dates: start: 202310
  7. PANTOPRAZOLE SODIUM [Concomitant]
     Active Substance: PANTOPRAZOLE SODIUM
     Indication: Duodenal ulcer
     Dosage: 40 MG
     Route: 048
     Dates: start: 2019
  8. PREDNISOLONE [Concomitant]
     Active Substance: PREDNISOLONE
     Indication: Skin disorder
     Dosage: 5 MG
     Route: 050
     Dates: start: 2017
  9. AMLODIPINE [Concomitant]
     Active Substance: AMLODIPINE BESYLATE
     Indication: Hypertension
     Dosage: 2.5 MG
     Route: 050
     Dates: start: 20240325
  10. SEVELAMER HYDROCHLORIDE [Concomitant]
     Active Substance: SEVELAMER HYDROCHLORIDE
     Indication: Hyperphosphataemia
     Dosage: TDS WITH MEALS
     Route: 050
     Dates: start: 2019
  11. PANTOPRAZOLE SODIUM [Concomitant]
     Active Substance: PANTOPRAZOLE SODIUM
     Indication: Duodenal ulcer
     Route: 050
     Dates: start: 2019

REACTIONS (8)
  - Cholecystitis [Recovered/Resolved]
  - SARS-CoV-2 test positive [Recovered/Resolved]
  - Abdominal pain upper [Recovering/Resolving]
  - Pyrexia [Recovered/Resolved]
  - C-reactive protein abnormal [Recovered/Resolved]
  - Vomiting [Recovered/Resolved]
  - Headache [Recovering/Resolving]
  - Nausea [Recovering/Resolving]

NARRATIVE: CASE EVENT DATE: 20240401
